FAERS Safety Report 9605865 (Version 1)
Quarter: 2013Q4

REPORT INFORMATION
  Report Type: Spontaneous
  Country: FR (occurrence: FR)
  Receive Date: 20131008
  Receipt Date: 20131008
  Transmission Date: 20140711
  Serious: Yes (Other)
  Sender: FDA-Public Use
  Company Number: PHHY2013FR111312

PATIENT
  Age: 47 Year
  Sex: Male

DRUGS (4)
  1. TEGRETOL [Suspect]
     Indication: EPILEPSY
     Dosage: UNK UKN, UNK
  2. TEGRETOL [Suspect]
     Dosage: UNK
     Dates: start: 20131003
  3. TEGRETOL [Suspect]
     Dosage: 2.5 DF, DAILY (400 MG)
  4. URBANYL [Concomitant]
     Dosage: UNK UKN, UNK

REACTIONS (3)
  - Loss of consciousness [Unknown]
  - Convulsion [Recovered/Resolved]
  - Migraine [Not Recovered/Not Resolved]
